FAERS Safety Report 21560297 (Version 2)
Quarter: 2022Q4

REPORT INFORMATION
  Report Type: Spontaneous
  Country: SE (occurrence: SE)
  Receive Date: 20221107
  Receipt Date: 20221107
  Transmission Date: 20230113
  Serious: No
  Sender: FDA-Public Use
  Company Number: SE-PFIZER INC-202201244753

PATIENT
  Sex: Female

DRUGS (1)
  1. FRAGMIN [Suspect]
     Active Substance: DALTEPARIN SODIUM
     Dosage: 7500 IU

REACTIONS (3)
  - Liquid product physical issue [Unknown]
  - Incorrect dose administered [Unknown]
  - Poor quality product administered [Unknown]
